FAERS Safety Report 5685357-6 (Version None)
Quarter: 2008Q1

REPORT INFORMATION
  Report Type: 
  Country: None (occurrence: None)
  Receive Date: 20080328
  Receipt Date: 20080318
  Transmission Date: 20080703
  Serious: Yes (Other)
  Sender: FDA-Public Use
  Company Number: FR-PFIZER INC-2008025321

PATIENT
  Sex: Female
  Weight: 82 kg

DRUGS (4)
  1. ALDACTONE [Suspect]
     Indication: HYPERALDOSTERONISM
     Dosage: DAILY DOSE:75MG
  2. GLUCOPHAGE [Concomitant]
  3. FUROSEMIDE [Concomitant]
  4. DIAMICRON [Concomitant]

REACTIONS (3)
  - BLOOD ALDOSTERONE INCREASED [None]
  - DIABETES MELLITUS [None]
  - OEDEMA [None]
